FAERS Safety Report 18106526 (Version 2)
Quarter: 2020Q3

REPORT INFORMATION
  Report Type: Spontaneous
  Country: GB (occurrence: GB)
  Receive Date: 20200804
  Receipt Date: 20200810
  Transmission Date: 20201103
  Serious: Yes (Other)
  Sender: FDA-Public Use
  Company Number: GB-BAYER-2020-027842

PATIENT
  Sex: Male

DRUGS (1)
  1. NEXAVAR [Suspect]
     Active Substance: SORAFENIB
     Dosage: 200 MG, BID

REACTIONS (4)
  - Off label use [None]
  - Bone marrow disorder [None]
  - Product administered to patient of inappropriate age [None]
  - Rash [Recovering/Resolving]

NARRATIVE: CASE EVENT DATE: 202004
